FAERS Safety Report 5091721-9 (Version None)
Quarter: 2006Q3

REPORT INFORMATION
  Report Type: 
  Country: None (occurrence: None)
  Receive Date: 20060824
  Receipt Date: 20060816
  Transmission Date: 20061208
  Serious: Yes (Death)
  Sender: FDA-Public Use
  Company Number: 2006US001667

PATIENT
  Age: 46 Year
  Sex: Male

DRUGS (10)
  1. AMBISOME [Suspect]
     Indication: SYSTEMIC CANDIDA
     Dosage: SEE IMAGE
     Dates: start: 20060713, end: 20060715
  2. AMBISOME [Suspect]
     Indication: SYSTEMIC CANDIDA
     Dosage: SEE IMAGE
     Dates: start: 20060716, end: 20060717
  3. FUNGIZONE [Suspect]
     Indication: SYSTEMIC CANDIDA
     Dosage: 80 MG, UID/QD, ORAL
     Route: 048
     Dates: start: 20060707, end: 20060713
  4. MAXIPIME [Concomitant]
  5. FUROSEMIDE (FUROSEMIDE SODIUM) [Concomitant]
  6. TRIAZOLE DERIVATIVES [Concomitant]
  7. FUNGUARD (MICAFUNGIN SODIUM) [Concomitant]
  8. LEVOTHYROXINE SODIUM [Concomitant]
  9. CORTRIL [Concomitant]
  10. URSO ACIDO URSODESOXICOLICO COMPUESTO (THIAMINE HYDROCHLORIDE, URSODEO [Concomitant]

REACTIONS (3)
  - ANURIA [None]
  - RENAL FAILURE [None]
  - SYSTEMIC CANDIDA [None]
